FAERS Safety Report 8319630-X (Version None)
Quarter: 2012Q2

REPORT INFORMATION
  Report Type: 
  Country: None (occurrence: None)
  Receive Date: 20120427
  Receipt Date: 20120423
  Transmission Date: 20120825
  Serious: Yes (Death)
  Sender: FDA-Public Use
  Company Number: PHHY2012US035360

PATIENT
  Age: 67 Year
  Sex: Female

DRUGS (7)
  1. AMPHETAMINE AND DEXTROAMPHETAMINE SALTS [Suspect]
  2. SOLIFENACIN SUCCINATE [Suspect]
  3. ESCITALOPRAM [Suspect]
  4. METOPROLOL TARTRATE [Suspect]
  5. MEMANTINE HYDROCHLORIDE [Suspect]
  6. CLOZAPINE [Suspect]
  7. SIMVASTATIN [Suspect]

REACTIONS (1)
  - DEATH [None]
